FAERS Safety Report 5647198-5 (Version None)
Quarter: 2008Q1

REPORT INFORMATION
  Report Type: 
  Country: None (occurrence: None)
  Receive Date: 20080228
  Receipt Date: 20080228
  Transmission Date: 20080703
  Serious: No
  Sender: FDA-Public Use
  Company Number: None

PATIENT
  Age: 60 Year
  Sex: Female
  Weight: 112.4921 kg

DRUGS (7)
  1. CYMBALTA [Suspect]
     Indication: DEPRESSION
     Dosage: 30 MG BID PO
     Route: 048
     Dates: start: 20070426, end: 20080228
  2. CYMBALTA [Suspect]
     Indication: NEURALGIA
     Dosage: 30 MG BID PO
     Route: 048
     Dates: start: 20070426, end: 20080228
  3. CRESTOR [Concomitant]
  4. SYNTHROID [Concomitant]
  5. NEXIUM [Concomitant]
  6. CALCIUM CITRATE WITH D AND MAGNESIUM [Concomitant]
  7. PULMICORT [Concomitant]

REACTIONS (2)
  - DRY MOUTH [None]
  - HEADACHE [None]
